APPROVED DRUG PRODUCT: HYDROPRES 50
Active Ingredient: HYDROCHLOROTHIAZIDE; RESERPINE
Strength: 50MG;0.125MG
Dosage Form/Route: TABLET;ORAL
Application: N011958 | Product #003
Applicant: MERCK AND CO INC
Approved: Approved Prior to Jan 1, 1982 | RLD: No | RS: No | Type: DISCN